FAERS Safety Report 20865086 (Version 2)
Quarter: 2024Q1

REPORT INFORMATION
  Report Type: Spontaneous
  Country: US (occurrence: US)
  Receive Date: 20220524
  Receipt Date: 20240219
  Transmission Date: 20240409
  Serious: Yes (Other)
  Sender: FDA-Public Use
  Company Number: US-BRISTOL-MYERS SQUIBB COMPANY-2022-038546

PATIENT
  Age: 50 Year
  Sex: Female
  Weight: 100.6 kg

DRUGS (1)
  1. REVLIMID [Suspect]
     Active Substance: LENALIDOMIDE
     Indication: Plasma cell myeloma
     Dosage: FREQUENCY: DAILY.
     Route: 048

REACTIONS (5)
  - Seizure [Recovering/Resolving]
  - Shoulder fracture [Recovering/Resolving]
  - Spinal column injury [Recovering/Resolving]
  - Off label use [Unknown]
  - Product availability issue [Unknown]
